FAERS Safety Report 11458804 (Version 2)
Quarter: 2015Q4

REPORT INFORMATION
  Report Type: Spontaneous
  Country: US (occurrence: US)
  Receive Date: 20150904
  Receipt Date: 20151007
  Transmission Date: 20160304
  Serious: Yes (Other)
  Sender: FDA-Public Use
  Company Number: US-PFIZER INC-2015285550

PATIENT
  Sex: Female

DRUGS (2)
  1. KEPPRA [Suspect]
     Active Substance: LEVETIRACETAM
     Dosage: UNK
  2. DILANTIN [Suspect]
     Active Substance: PHENYTOIN
     Dosage: UNK
     Dates: start: 2008

REACTIONS (7)
  - Seizure [Recovered/Resolved]
  - Headache [Unknown]
  - Feeling drunk [Unknown]
  - Somnolence [Unknown]
  - Dizziness [Unknown]
  - Anger [Unknown]
  - Abdominal discomfort [Unknown]
